FAERS Safety Report 6556791-7 (Version None)
Quarter: 2010Q1

REPORT INFORMATION
  Report Type: 
  Country: None (occurrence: None)
  Receive Date: 20100128
  Receipt Date: 20100114
  Transmission Date: 20100710
  Serious: Yes (Hospitalization, Other)
  Sender: FDA-Public Use
  Company Number: PHEH2008US08143

PATIENT
  Sex: Female

DRUGS (17)
  1. ZELNORM [Suspect]
     Indication: IRRITABLE BOWEL SYNDROME
     Dosage: 6 MG, BID
     Route: 048
  2. PLAVIX [Concomitant]
     Dosage: 75 MG, QD
  3. LISINOPRIL AND HYDROCHLOROTHIAZIDE [Concomitant]
     Dosage: 20/25 MG QD
  4. CRESTOR [Concomitant]
     Dosage: 20 MG, QD
  5. POTASSIUM [Concomitant]
     Dosage: 10 MEQ, QD
  6. AMITIZA [Concomitant]
     Dosage: 24 MCG QD
     Route: 048
  7. METOPROLOL SUCCINATE [Concomitant]
     Dosage: 50 MG, UNK
     Route: 048
  8. TENORMIN [Concomitant]
     Dosage: 50 MG, QD
  9. ALTACE [Concomitant]
     Dosage: 5 MG, QD
  10. AGGRENOX [Concomitant]
  11. LASIX [Concomitant]
     Dosage: 40 MG, QD
  12. DIGOXIN [Concomitant]
     Dosage: 0.25 MG, UNK
  13. CEFTIN [Concomitant]
     Dosage: 250 MG, UNK
  14. CARDIZEM [Concomitant]
  15. AMINOPHYLLINE [Concomitant]
     Dosage: 500 MG, UNK
  16. NITROSTAT [Concomitant]
  17. LOVENOX [Concomitant]

REACTIONS (17)
  - APHASIA [None]
  - ARTERIOSPASM CORONARY [None]
  - CARDIAC FAILURE [None]
  - CARDIOMYOPATHY [None]
  - CEREBROVASCULAR ACCIDENT [None]
  - CORONARY ARTERY DISEASE [None]
  - ELECTROCARDIOGRAM ABNORMAL [None]
  - EMOTIONAL DISTRESS [None]
  - HEMIPARESIS [None]
  - HYPERCHOLESTEROLAEMIA [None]
  - HYPERLIPIDAEMIA [None]
  - HYPERTENSION [None]
  - HYPOKALAEMIA [None]
  - HYPONATRAEMIA [None]
  - INJURY [None]
  - MYOCARDIAL INFARCTION [None]
  - SYNCOPE [None]
